FAERS Safety Report 22237097 (Version 1)
Quarter: 2023Q2

REPORT INFORMATION
  Report Type: Spontaneous
  Country: US (occurrence: None)
  Receive Date: 20230421
  Receipt Date: 20230421
  Transmission Date: 20230722
  Serious: No
  Sender: FDA-Public Use
  Company Number: US-ROCHE-3271662

PATIENT
  Age: 54 Year
  Sex: Female

DRUGS (17)
  1. ESBRIET [Suspect]
     Active Substance: PIRFENIDONE
     Indication: Asthma
     Route: 048
     Dates: start: 20171110
  2. ESBRIET [Suspect]
     Active Substance: PIRFENIDONE
     Indication: Idiopathic pulmonary fibrosis
  3. ENTRESTO [Concomitant]
     Active Substance: SACUBITRIL\VALSARTAN
     Dosage: 24-26MG
  4. ALPRAZOLAM [Concomitant]
     Active Substance: ALPRAZOLAM
  5. AMLODIPINE [Concomitant]
     Active Substance: AMLODIPINE BESYLATE
  6. AZATHIOPRINE [Concomitant]
     Active Substance: AZATHIOPRINE
  7. BREO ELLIPTA [Concomitant]
     Active Substance: FLUTICASONE FUROATE\VILANTEROL TRIFENATATE
     Dosage: 200-25MC
  8. CARVEDILOL [Concomitant]
     Active Substance: CARVEDILOL
  9. DALIRESP [Concomitant]
     Active Substance: ROFLUMILAST
     Dosage: 500MCG
  10. FLOVENT HFA [Concomitant]
     Active Substance: FLUTICASONE PROPIONATE
     Dosage: 110MCG/AC
  11. FLUCONAZOLE [Concomitant]
     Active Substance: FLUCONAZOLE
  12. HYDROCODONE [Concomitant]
     Active Substance: HYDROCODONE
     Dosage: 10-32MG
  13. IPRATROPIUM [Concomitant]
     Active Substance: IPRATROPIUM
     Dosage: 0.5-2.5
  14. LEVOFLOXACIN [Concomitant]
     Active Substance: LEVOFLOXACIN
  15. MONTELUKAST [Concomitant]
     Active Substance: MONTELUKAST SODIUM
  16. RANITIDINE [Concomitant]
     Active Substance: RANITIDINE
  17. ERGOCALCIFEROL [Concomitant]
     Active Substance: ERGOCALCIFEROL

REACTIONS (5)
  - Gastric disorder [Unknown]
  - Gastrooesophageal reflux disease [Unknown]
  - Intentional product misuse [Unknown]
  - Weight decreased [Unknown]
  - Off label use [Unknown]
